FAERS Safety Report 12944289 (Version 3)
Quarter: 2016Q4

REPORT INFORMATION
  Report Type: Spontaneous
  Country: KR (occurrence: KR)
  Receive Date: 20161115
  Receipt Date: 20161207
  Transmission Date: 20170207
  Serious: Yes (Hospitalization)
  Sender: FDA-Public Use
  Company Number: KR-009507513-1607KOR008074

PATIENT
  Age: 63 Year
  Sex: Female
  Weight: 68.7 kg

DRUGS (20)
  1. VAROSC [Concomitant]
     Indication: HYPERTENSION
     Dosage: 5 MG, QD
     Route: 048
     Dates: start: 2012, end: 20160802
  2. EMEND (FOSAPREPITANT DIMEGLUMINE) [Suspect]
     Active Substance: FOSAPREPITANT DIMEGLUMINE
     Dosage: 150 MG, ONCE
     Route: 042
     Dates: start: 20161103, end: 20161103
  3. ILDONGADRIAMYCIN RDF [Concomitant]
     Indication: CHEMOTHERAPY
  4. DBL VINCRISTINE SULFATE [Concomitant]
     Active Substance: VINCRISTINE SULFATE
     Indication: DIFFUSE LARGE B-CELL LYMPHOMA
     Dosage: 2 MG, ONCE, CYCLE 1; STRENGHT 1MG/ML 1 ML
     Route: 042
     Dates: start: 20160714, end: 20160714
  5. ZYLORIC [Concomitant]
     Active Substance: ALLOPURINOL
     Indication: PROPHYLAXIS
     Dosage: 100 MG, TID
     Route: 048
     Dates: start: 20160713, end: 20160824
  6. EMEND (FOSAPREPITANT DIMEGLUMINE) [Suspect]
     Active Substance: FOSAPREPITANT DIMEGLUMINE
     Dosage: 150 MG, ONCE
     Route: 042
     Dates: start: 20160804, end: 20160804
  7. ENDOXAN [Concomitant]
     Active Substance: CYCLOPHOSPHAMIDE
     Indication: DIFFUSE LARGE B-CELL LYMPHOMA
     Dosage: 1252 MG, ONCE, CYCLE 1
     Route: 042
     Dates: start: 20160714, end: 20160714
  8. ENDOXAN [Concomitant]
     Active Substance: CYCLOPHOSPHAMIDE
     Indication: CHEMOTHERAPY
  9. ILDONGADRIAMYCIN RDF [Concomitant]
     Indication: DIFFUSE LARGE B-CELL LYMPHOMA
     Dosage: 84 MG, ONCE, CYCLE 1
     Route: 042
     Dates: start: 20160714, end: 20160714
  10. ALOXI [Concomitant]
     Active Substance: PALONOSETRON HYDROCHLORIDE
     Indication: PROPHYLAXIS OF NAUSEA AND VOMITING
     Dosage: 0.25 MG, ONCE
     Route: 042
     Dates: start: 20160714, end: 20160714
  11. EMEND (FOSAPREPITANT DIMEGLUMINE) [Suspect]
     Active Substance: FOSAPREPITANT DIMEGLUMINE
     Dosage: 150 MG, ONCE
     Route: 042
     Dates: start: 20161011, end: 20161011
  12. MABTHERA [Concomitant]
     Active Substance: RITUXIMAB
     Indication: DIFFUSE LARGE B-CELL LYMPHOMA
     Dosage: 626 MG, ONCE, CYCLE 1
     Route: 042
     Dates: start: 20160714, end: 20160714
  13. DBL VINCRISTINE SULFATE [Concomitant]
     Active Substance: VINCRISTINE SULFATE
     Indication: CHEMOTHERAPY
  14. HYDROCHLOROTHIAZIDE (+) VALSARTAN [Concomitant]
     Active Substance: HYDROCHLOROTHIAZIDE\VALSARTAN
     Indication: HYPERTENSION
     Dosage: 1 TABLET, QD
     Route: 048
     Dates: start: 2012, end: 20160802
  15. STRIBILD [Concomitant]
     Active Substance: COBICISTAT\ELVITEGRAVIR\EMTRICITABINE\TENOFOVIR DISOPROXIL FUMARATE
     Indication: CHRONIC HEPATITIS B
     Dosage: 300 MG, QD
     Route: 048
     Dates: start: 20160713
  16. CARDIOXANE [Concomitant]
     Active Substance: DEXRAZOXANE HYDROCHLORIDE
     Indication: PROPHYLAXIS
     Dosage: 840 MG, ONCE
     Route: 042
     Dates: start: 20160714, end: 20160714
  17. EMEND (FOSAPREPITANT DIMEGLUMINE) [Suspect]
     Active Substance: FOSAPREPITANT DIMEGLUMINE
     Indication: PROPHYLAXIS OF NAUSEA AND VOMITING
     Dosage: 150 MG, ONCE
     Route: 042
     Dates: start: 20160714, end: 20160714
  18. EMEND (FOSAPREPITANT DIMEGLUMINE) [Suspect]
     Active Substance: FOSAPREPITANT DIMEGLUMINE
     Dosage: 150 MG, ONCE
     Route: 042
     Dates: start: 20160825, end: 20160825
  19. EMEND (FOSAPREPITANT DIMEGLUMINE) [Suspect]
     Active Substance: FOSAPREPITANT DIMEGLUMINE
     Dosage: 150 MG, ONCE
     Route: 042
     Dates: start: 20160920, end: 20160920
  20. MABTHERA [Concomitant]
     Active Substance: RITUXIMAB
     Indication: CHEMOTHERAPY

REACTIONS (10)
  - Herpes zoster [Recovered/Resolved]
  - Nausea [Recovered/Resolved]
  - Nausea [Recovered/Resolved]
  - Post herpetic neuralgia [Recovered/Resolved]
  - Neutrophil count decreased [Recovered/Resolved]
  - Nausea [Recovered/Resolved]
  - Constipation [Recovered/Resolved]
  - Constipation [Recovered/Resolved]
  - Nausea [Recovered/Resolved]
  - Infusion related reaction [Recovered/Resolved]

NARRATIVE: CASE EVENT DATE: 20160714
